FAERS Safety Report 6336955-8 (Version None)
Quarter: 2009Q3

REPORT INFORMATION
  Report Type: 
  Country: None (occurrence: None)
  Receive Date: 20090901
  Receipt Date: 20090824
  Transmission Date: 20100115
  Serious: Yes (Hospitalization)
  Sender: FDA-Public Use
  Company Number: US-SANOFI-SYNTHELABO-A03200903017

PATIENT
  Sex: Male
  Weight: 79.82 kg

DRUGS (23)
  1. LABETALOL HCL [Concomitant]
     Indication: DRUG USE FOR UNKNOWN INDICATION
     Route: 065
  2. LISINOPRIL [Concomitant]
     Indication: HYPERTENSION
     Dosage: 5-40MG DAILY
     Route: 065
     Dates: start: 20040801, end: 20090201
  3. TOPROL-XL [Concomitant]
     Indication: HYPERTENSION
     Dosage: 50-100MG DAILY
     Route: 065
     Dates: start: 20080401, end: 20081201
  4. PROCARDIA [Concomitant]
     Indication: HYPERTENSION
     Route: 065
     Dates: start: 20090501
  5. NEXIUM [Concomitant]
     Indication: HYPERCHLORHYDRIA
     Route: 065
     Dates: start: 20050101
  6. LIPITOR [Concomitant]
     Indication: BLOOD CHOLESTEROL
     Dosage: 20MG TO 40MG DAILY
     Route: 065
     Dates: start: 20081201
  7. NORVASC [Concomitant]
     Indication: HYPERTENSION
     Dosage: 2.5MG TO 10MG DAILY
     Route: 065
     Dates: start: 20060401
  8. IMDUR [Concomitant]
     Indication: CARDIAC DISORDER
     Route: 065
     Dates: start: 20080901
  9. SLOW FE IRON [Concomitant]
     Indication: ANAEMIA
     Route: 065
     Dates: start: 20071101
  10. TEKTURNA [Concomitant]
     Indication: HYPERTENSION
     Route: 065
     Dates: start: 20090501, end: 20090601
  11. TENORMIN [Concomitant]
     Indication: HYPERTENSION
     Dosage: 25-200MG DAILY
     Route: 048
     Dates: start: 20081201
  12. PLAVIX [Suspect]
     Indication: STENT PLACEMENT
     Route: 048
     Dates: start: 20080801, end: 20090525
  13. PLAVIX [Suspect]
     Route: 048
     Dates: start: 20090623
  14. VITAMIN E [Concomitant]
     Indication: ASTHENIA
     Route: 065
     Dates: start: 20000101
  15. TYLENOL (CAPLET) [Concomitant]
     Indication: PAIN
     Route: 065
     Dates: start: 20000101
  16. ASPIRIN [Concomitant]
     Indication: CORONARY ARTERIAL STENT INSERTION
     Route: 065
     Dates: start: 20080801
  17. ZYRTEC [Concomitant]
     Indication: SEASONAL ALLERGY
     Route: 065
     Dates: start: 20040101
  18. VITAMIN B-12 [Concomitant]
     Indication: VITAMIN B12 DEFICIENCY
     Dosage: 1 CC
     Route: 030
     Dates: start: 20071101
  19. MICARDIS [Concomitant]
     Indication: HYPERTENSION
     Route: 065
     Dates: start: 20090501
  20. CLONIDINE [Concomitant]
     Indication: HYPERTENSION
     Dosage: .01MG TO .5MG DAILY
     Route: 065
     Dates: start: 20080901, end: 20081201
  21. CRESTOR [Concomitant]
     Indication: BLOOD CHOLESTEROL
     Route: 065
     Dates: start: 20080701, end: 20081201
  22. ZETIA [Concomitant]
     Indication: BLOOD CHOLESTEROL
     Route: 065
     Dates: start: 20080301, end: 20080801
  23. VYTORIN [Concomitant]
     Indication: BLOOD CHOLESTEROL
     Route: 065
     Dates: start: 20080601, end: 20080701

REACTIONS (7)
  - AMYLOIDOSIS [None]
  - ANAEMIA [None]
  - BLOOD POTASSIUM INCREASED [None]
  - BLOOD PRESSURE INCREASED [None]
  - CORONARY ARTERY OCCLUSION [None]
  - POST PROCEDURAL HAEMORRHAGE [None]
  - PROTEINURIA [None]
